FAERS Safety Report 8573061 (Version 4)
Quarter: 2012Q4

REPORT INFORMATION
  Report Type: Spontaneous
  Country: None (occurrence: None)
  Receive Date: 20120515
  Receipt Date: 20120918
  Transmission Date: 20130627
  Serious: Yes (Hospitalization)
  Sender: FDA-Public Use
  Company Number: AUR-APL-2012-02117

PATIENT
  Age: 34 Year
  Sex: Male
  Weight: 80 kg

DRUGS (5)
  1. LAMOTRIGINE [Suspect]
     Indication: TONIC-CLONIC SEIZURES
     Route: 048
     Dates: start: 20120209, end: 20120409
  2. LAMOTRIGINE [Suspect]
     Indication: EPILEPSY
     Route: 048
     Dates: start: 20120209, end: 20120409
  3. KEPRA (LEVETIRACETAM) [Concomitant]
  4. ACETAMINOPHEN [Concomitant]
  5. ALBUTEROL SULFATE [Concomitant]

REACTIONS (10)
  - Influenza like illness [None]
  - Pain [None]
  - Hepatitis [None]
  - Oropharyngeal pain [None]
  - Mouth ulceration [None]
  - Swelling face [None]
  - Eyelid oedema [None]
  - Conjunctival irritation [None]
  - Angioedema [None]
  - Drug reaction with eosinophilia and systemic symptoms [None]
